FAERS Safety Report 16568767 (Version 1)
Quarter: 2019Q3

REPORT INFORMATION
  Report Type: Spontaneous
  Country: IT (occurrence: IT)
  Receive Date: 20190713
  Receipt Date: 20190713
  Transmission Date: 20191004
  Serious: Yes (Other)
  Sender: FDA-Public Use
  Company Number: IT-TAKEDA-2019TUS042088

PATIENT
  Age: 53 Year
  Sex: Male
  Weight: 80 kg

DRUGS (2)
  1. HALOPERIDOL. [Suspect]
     Active Substance: HALOPERIDOL
     Indication: PRODUCT USED FOR UNKNOWN INDICATION
     Dosage: 1 MILLIGRAM
     Route: 065
  2. BRINTELLIX [Suspect]
     Active Substance: VORTIOXETINE HYDROBROMIDE
     Indication: PRODUCT USED FOR UNKNOWN INDICATION
     Dosage: 5 MILLIGRAM
     Route: 048

REACTIONS (12)
  - Tachycardia [Unknown]
  - Tremor [Unknown]
  - Miosis [Unknown]
  - Nystagmus [Unknown]
  - Rhabdomyolysis [Unknown]
  - Leukocytosis [Unknown]
  - Hypertonia [Unknown]
  - Hyperthermia [Unknown]
  - Respiratory alkalosis [Unknown]
  - Aspartate aminotransferase increased [Unknown]
  - Hyporeflexia [Unknown]
  - Alanine aminotransferase increased [Unknown]

NARRATIVE: CASE EVENT DATE: 20190613
